FAERS Safety Report 6092873-4 (Version None)
Quarter: 2009Q1

REPORT INFORMATION
  Report Type: 
  Country: None (occurrence: None)
  Receive Date: 20090225
  Receipt Date: 20090223
  Transmission Date: 20090719
  Serious: Yes (Hospitalization)
  Sender: FDA-Public Use
  Company Number: CN-ROXANE LABORATORIES, INC.-2009-RO-00178RO

PATIENT
  Age: 73 Year
  Sex: Female

DRUGS (2)
  1. AZATHIOPRINE [Suspect]
     Indication: DIVERTICULITIS
     Dosage: 75MG
     Dates: start: 20071101
  2. PREDNISOLONE [Suspect]
     Indication: DIVERTICULITIS
     Dosage: 15MG
     Dates: start: 20071101

REACTIONS (1)
  - CLOSTRIDIAL INFECTION [None]
